FAERS Safety Report 8363656-7 (Version None)
Quarter: 2012Q2

REPORT INFORMATION
  Report Type: 
  Country: None (occurrence: None)
  Receive Date: 20120516
  Receipt Date: 20120509
  Transmission Date: 20120825
  Serious: Yes (Other)
  Sender: FDA-Public Use
  Company Number: GB-JNJFOC-20120511899

PATIENT
  Sex: Male

DRUGS (2)
  1. ROGAINE EXTRA STRENGTH (FOR MEN) [Suspect]
     Route: 065
  2. ROGAINE EXTRA STRENGTH (FOR MEN) [Suspect]
     Indication: PRODUCT USED FOR UNKNOWN INDICATION
     Route: 065
     Dates: start: 20120101

REACTIONS (8)
  - SWELLING FACE [None]
  - ERYTHEMA [None]
  - EYE SWELLING [None]
  - PRURITUS [None]
  - ADVERSE DRUG REACTION [None]
  - DRY SKIN [None]
  - AURICULAR SWELLING [None]
  - INSOMNIA [None]
